FAERS Safety Report 25596715 (Version 1)
Quarter: 2025Q3

REPORT INFORMATION
  Report Type: Spontaneous
  Country: US (occurrence: None)
  Receive Date: 20250722
  Receipt Date: 20250722
  Transmission Date: 20251021
  Serious: No
  Sender: FDA-CTU
  Company Number: None

PATIENT

DRUGS (1)
  1. LORAZEPAM [Suspect]
     Active Substance: LORAZEPAM

REACTIONS (3)
  - Aggression [None]
  - Somnolence [None]
  - Somnolence [None]

NARRATIVE: CASE EVENT DATE: 20250722
